FAERS Safety Report 4898367-3 (Version None)
Quarter: 2006Q1

REPORT INFORMATION
  Report Type: 
  Country: None (occurrence: None)
  Receive Date: 20060131
  Receipt Date: 20060131
  Transmission Date: 20060701
  Serious: Yes (Other)
  Sender: FDA-Public Use
  Company Number: None

PATIENT
  Age: 14 Year
  Sex: Male
  Weight: 63.5036 kg

DRUGS (4)
  1. TRILEPTAL [Suspect]
     Indication: BIPOLAR DISORDER
     Dosage: 600 MG BID ORAL
     Route: 048
     Dates: start: 20051003
  2. PROZAC [Concomitant]
  3. RITALIN [Concomitant]
  4. ABILIFY [Concomitant]

REACTIONS (6)
  - AGGRESSION [None]
  - AGITATION [None]
  - ANGER [None]
  - BIPOLAR DISORDER [None]
  - CONDITION AGGRAVATED [None]
  - DEPRESSION [None]
